FAERS Safety Report 4262937-6 (Version None)
Quarter: 2004Q1

REPORT INFORMATION
  Report Type: 
  Country: None (occurrence: None)
  Receive Date: 20040102
  Receipt Date: 20040102
  Transmission Date: 20041129
  Serious: Yes (Hospitalization)
  Sender: FDA-Public Use
  Company Number: None

PATIENT
  Sex: Female
  Weight: 112.4921 kg

DRUGS (7)
  1. BEXTRA [Suspect]
     Indication: COLECTOMY PARTIAL
     Dosage: ONE TAB TWICE DAY ORAL
     Route: 048
     Dates: start: 20031127, end: 20031224
  2. BEXTRA [Suspect]
     Indication: POSTOPERATIVE ANALGESIA
     Dosage: ONE TAB TWICE DAY ORAL
     Route: 048
     Dates: start: 20031127, end: 20031224
  3. DIOVAN [Concomitant]
  4. ALLEGRA [Concomitant]
  5. LANTUS INSULIN [Concomitant]
  6. SUDAFED S.A. [Concomitant]
  7. HUMALOG [Concomitant]

REACTIONS (1)
  - CARDIAC FAILURE CONGESTIVE [None]
